FAERS Safety Report 20466966 (Version 2)
Quarter: 2022Q1

REPORT INFORMATION
  Report Type: Spontaneous
  Country: NL (occurrence: NL)
  Receive Date: 20220214
  Receipt Date: 20220217
  Transmission Date: 20220423
  Serious: Yes (Other)
  Sender: FDA-Public Use
  Company Number: NL-LRB-00755907

PATIENT
  Sex: Female

DRUGS (6)
  1. TETRABENAZINE [Suspect]
     Active Substance: TETRABENAZINE
     Indication: Chorea
     Dosage: 12.5 MILLIGRAM, BID 2DD 1/2 TABLET
     Route: 065
     Dates: start: 20211231, end: 20220107
  2. TETRABENAZINE [Suspect]
     Active Substance: TETRABENAZINE
     Dosage: 12.5 MILLIGRAM, DAILY 1 DD 1
     Route: 065
     Dates: start: 20211224
  3. LEVOTHYROXINE TABLET  25UG (ZUUR) / THYRAX DUOTAB TABLET 0,025MGTHY... [Concomitant]
     Indication: Product used for unknown indication
     Dosage: 1DD 3 OF 25MCG
     Route: 065
  4. ZOPICLON TABLET 3,75MG / Brand name not specifiedZOPICLON TABLET 3,... [Concomitant]
     Indication: Product used for unknown indication
     Dosage: TABLET, 3,75 MG (MILLIGRAM) ()
     Route: 065
  5. SIMVASTATIN [Concomitant]
     Active Substance: SIMVASTATIN
     Indication: Product used for unknown indication
     Dosage: FILM-COATED TABLET, 40 MG (MILLIGRAM) ()
     Route: 065
  6. AMLODIPINE TABLET   5MG / Brand name not specifiedAMLODIPINE TABLET... [Concomitant]
     Indication: Product used for unknown indication
     Dosage: TABLET, 5 MG (MILLIGRAM) ()
     Route: 065

REACTIONS (1)
  - Epilepsy [Unknown]
